FAERS Safety Report 7963384-3 (Version None)
Quarter: 2011Q4

REPORT INFORMATION
  Report Type: 
  Country: None (occurrence: None)
  Receive Date: 20111208
  Receipt Date: 20111123
  Transmission Date: 20120403
  Serious: Yes (Other)
  Sender: FDA-Public Use
  Company Number: US-SP-2011-07511

PATIENT
  Sex: Male

DRUGS (15)
  1. MULTI-VITAMINS [Concomitant]
     Dosage: 1 TABLET DAILY
  2. COUMADIN [Concomitant]
  3. ASPIRIN [Concomitant]
  4. PRADAXA [Concomitant]
  5. SANTURA [Concomitant]
  6. THERACYS [Suspect]
     Indication: BLADDER CANCER
     Route: 042
     Dates: start: 20110817, end: 20110817
  7. SYMBASTAT [Concomitant]
  8. CRESTOR [Concomitant]
  9. JENUVIA [Concomitant]
  10. COREG [Concomitant]
     Dosage: DAILY
  11. INTERFERON [Suspect]
     Dosage: 50 MILLIION UNITS
     Dates: start: 20110817, end: 20110817
  12. LIPITOR [Concomitant]
  13. CARVEDILOL [Concomitant]
  14. LISINOPRIL [Concomitant]
     Dosage: DAILY
  15. SPIRONOLACTONE [Concomitant]
     Dosage: DAILY

REACTIONS (8)
  - NAUSEA [None]
  - WEIGHT DECREASED [None]
  - BODY TEMPERATURE INCREASED [None]
  - HYPERHIDROSIS [None]
  - DYSGEUSIA [None]
  - CHILLS [None]
  - DRUG INTERACTION [None]
  - BOVINE TUBERCULOSIS [None]
